FAERS Safety Report 6781297-X (Version None)
Quarter: 2010Q2

REPORT INFORMATION
  Report Type: 
  Country: None (occurrence: None)
  Receive Date: 20100621
  Receipt Date: 20100609
  Transmission Date: 20101027
  Serious: Yes (Hospitalization)
  Sender: FDA-Public Use
  Company Number: PHHY2010US26509

PATIENT
  Sex: Male
  Weight: 90.9 kg

DRUGS (14)
  1. EXJADE [Suspect]
     Indication: ANAEMIA OF CHRONIC DISEASE
     Dosage: 1750 MG DAILY
     Route: 048
     Dates: start: 20100409
  2. COREG [Concomitant]
  3. BUMEX [Concomitant]
  4. HYDRALAZINE HCL [Concomitant]
  5. METOLAZONE [Concomitant]
  6. ELAVIL [Concomitant]
  7. AMARYL [Concomitant]
  8. FENTANYL [Concomitant]
  9. RESTORIL [Concomitant]
  10. PLAVIX [Concomitant]
  11. PHENERGAN [Concomitant]
  12. SULAR [Concomitant]
  13. ASPIRIN [Concomitant]
  14. DILAUDID [Concomitant]

REACTIONS (5)
  - BONE PAIN [None]
  - DIARRHOEA [None]
  - FEELING ABNORMAL [None]
  - PNEUMONIA [None]
  - SPLEEN DISORDER [None]
